FAERS Safety Report 5426311-9 (Version None)
Quarter: 2007Q3

REPORT INFORMATION
  Report Type: 
  Country: None (occurrence: None)
  Receive Date: 20070827
  Receipt Date: 20070821
  Transmission Date: 20080115
  Serious: Yes (Hospitalization)
  Sender: FDA-Public Use
  Company Number: AU-ASTRAZENECA-2007AP05300

PATIENT
  Age: 73 Year
  Sex: Female

DRUGS (6)
  1. NEXIUM [Suspect]
     Indication: OESOPHAGEAL DISORDER
     Route: 048
  2. ATENOLOL [Suspect]
     Indication: ESSENTIAL HYPERTENSION
  3. SIMVASTATIN [Suspect]
     Indication: CEREBROVASCULAR DISORDER
     Route: 048
  4. ENOXAPARIN SODIUM [Suspect]
     Indication: CEREBROVASCULAR DISORDER
     Route: 058
     Dates: start: 20060308, end: 20060323
  5. WARFARIN SODIUM [Suspect]
     Indication: CEREBROVASCULAR DISORDER
     Route: 048
     Dates: start: 20060308, end: 20060326
  6. CLOPIDOGREL [Suspect]
     Indication: CEREBROVASCULAR DISORDER
     Route: 048
     Dates: start: 20060302, end: 20060308

REACTIONS (4)
  - ABDOMINAL PAIN [None]
  - CIRCULATORY COLLAPSE [None]
  - MUSCLE HAEMORRHAGE [None]
  - RETROPERITONEAL HAEMORRHAGE [None]
